FAERS Safety Report 7243246-X (Version None)
Quarter: 2011Q1

REPORT INFORMATION
  Report Type: 
  Country: None (occurrence: None)
  Receive Date: 20110125
  Receipt Date: 20110120
  Transmission Date: 20110831
  Serious: Yes (Other)
  Sender: FDA-Public Use
  Company Number: BR-ROCHE-750008

PATIENT
  Sex: Female
  Weight: 91 kg

DRUGS (5)
  1. OMEPRAZOLE [Concomitant]
     Indication: GASTRITIS
     Dosage: IN MORNING
  2. RIVOTRIL [Suspect]
     Indication: SEDATIVE THERAPY
     Dosage: OTHER INDICATION: LABYRINTHITIS
     Route: 065
     Dates: start: 20101219, end: 20101222
  3. CARDIZEM [Concomitant]
     Indication: BLOOD PRESSURE
  4. HYDROCHLOROTHIAZIDE [Concomitant]
     Indication: BLOOD PRESSURE
     Dosage: ON MORNING
  5. ENALAPRIL [Concomitant]
     Indication: BLOOD PRESSURE

REACTIONS (8)
  - FALL [None]
  - NEURALGIA [None]
  - NERVOUSNESS [None]
  - DYSPNOEA [None]
  - DEPRESSION [None]
  - PAIN IN EXTREMITY [None]
  - HEAD INJURY [None]
  - MUSCULAR WEAKNESS [None]
